FAERS Safety Report 6832765-3 (Version None)
Quarter: 2010Q3

REPORT INFORMATION
  Report Type: 
  Country: None (occurrence: None)
  Receive Date: 20100712
  Receipt Date: 20070320
  Transmission Date: 20110219
  Serious: No
  Sender: FDA-Public Use
  Company Number: US-PFIZER INC-2007023805

PATIENT
  Sex: Female
  Weight: 90.72 kg

DRUGS (5)
  1. CHANTIX [Suspect]
     Indication: SMOKING CESSATION THERAPY
     Route: 048
     Dates: start: 20070201
  2. QUINAPRIL HYDROCHLORIDE [Concomitant]
     Indication: HYPERTENSION
  3. CELEXA [Concomitant]
  4. BUSPAR [Concomitant]
  5. FLONASE [Concomitant]
     Indication: ASTHMA

REACTIONS (3)
  - EYE PAIN [None]
  - FATIGUE [None]
  - HEADACHE [None]
